FAERS Safety Report 7732759-X (Version None)
Quarter: 2011Q3

REPORT INFORMATION
  Report Type: 
  Country: None (occurrence: None)
  Receive Date: 20110901
  Receipt Date: 20101007
  Transmission Date: 20111222
  Serious: Yes (Hospitalization)
  Sender: FDA-Public Use
  Company Number: GAM-287-10-US

PATIENT
  Age: 46 Year
  Sex: Female

DRUGS (5)
  1. ATIVAN [Concomitant]
  2. RELPAX [Concomitant]
  3. OCTAGAM [Suspect]
     Indication: SJOGREN'S SYNDROME
     Dosage: IV
     Route: 042
     Dates: start: 20100729, end: 20100729
  4. VALIUM [Concomitant]
  5. RITUXAN [Concomitant]

REACTIONS (1)
  - MIGRAINE WITH AURA [None]
